FAERS Safety Report 16428696 (Version 1)
Quarter: 2019Q2

REPORT INFORMATION
  Report Type: Spontaneous
  Country: US (occurrence: US)
  Receive Date: 20190613
  Receipt Date: 20190613
  Transmission Date: 20190711
  Serious: Yes (Other)
  Sender: FDA-Public Use
  Company Number: PHEH2019US024069

PATIENT
  Age: 59 Year
  Sex: Male

DRUGS (2)
  1. AFINITOR [Suspect]
     Active Substance: EVEROLIMUS
     Indication: RENAL CELL CARCINOMA
     Dosage: 5 MG, UNK
     Route: 048
  2. LENVATINIB [Suspect]
     Active Substance: LENVATINIB
     Indication: RENAL CANCER
     Dosage: 10 MG, QD
     Route: 048
     Dates: start: 20190117

REACTIONS (10)
  - Metastases to chest wall [Unknown]
  - Weight decreased [Unknown]
  - Discomfort [Unknown]
  - Oedema peripheral [Recovered/Resolved]
  - Decreased appetite [Unknown]
  - Fatigue [Unknown]
  - Metastases to pelvis [Unknown]
  - Oropharyngeal discomfort [Unknown]
  - Kidney enlargement [Unknown]
  - Joint swelling [Unknown]

NARRATIVE: CASE EVENT DATE: 20190522
